FAERS Safety Report 6562221-1 (Version None)
Quarter: 2010Q1

REPORT INFORMATION
  Report Type: 
  Country: None (occurrence: None)
  Receive Date: 20100130
  Receipt Date: 20091105
  Transmission Date: 20100710
  Serious: No
  Sender: FDA-Public Use
  Company Number: US-ABBOTT-09P-163-0607399-00

PATIENT
  Sex: Female
  Weight: 61.29 kg

DRUGS (3)
  1. HUMIRA [Suspect]
     Indication: PSORIASIS
     Dosage: LOADING DOSE 80MG, DAY
     Dates: start: 20091021, end: 20091021
  2. HUMIRA [Suspect]
     Dates: start: 20091028, end: 20091028
  3. HUMIRA [Suspect]
     Dosage: MAINTENANCE DOSE
     Dates: start: 20091104

REACTIONS (1)
  - INJECTION SITE PAIN [None]
